FAERS Safety Report 18875503 (Version 1)
Quarter: 2021Q1

REPORT INFORMATION
  Report Type: Report from Study
  Country: BG (occurrence: BG)
  Receive Date: 20210210
  Receipt Date: 20210210
  Transmission Date: 20210420
  Serious: Yes (Death, Other)
  Sender: FDA-Public Use
  Company Number: BG-BAYER-2021-032428

PATIENT
  Age: 77 Year
  Sex: Male

DRUGS (1)
  1. NEXAVAR [Suspect]
     Active Substance: SORAFENIB
     Indication: HEPATOCELLULAR CARCINOMA
     Dosage: 600 MG DAILY (1IN AM , 2 IN PM)
     Route: 048
     Dates: start: 20200701, end: 20201120

REACTIONS (4)
  - Hepatocellular carcinoma [Fatal]
  - Acute respiratory failure [None]
  - Pneumonia [None]
  - Ascites [None]

NARRATIVE: CASE EVENT DATE: 202011
